FAERS Safety Report 6300178-9 (Version None)
Quarter: 2009Q3

REPORT INFORMATION
  Report Type: 
  Country: None (occurrence: None)
  Receive Date: 20090806
  Receipt Date: 20090801
  Transmission Date: 20100115
  Serious: Yes (Hospitalization)
  Sender: FDA-Public Use
  Company Number: US-GENENTECH-287959

PATIENT

DRUGS (12)
  1. BLINDED BEVACIZUMAB [Suspect]
     Indication: BREAST CANCER
     Dosage: 10 MG/KG, Q14D
     Route: 042
     Dates: start: 20090703
  2. CYCLOPHOSPHAMIDE [Suspect]
     Indication: BREAST CANCER
     Dosage: 10 MG/KG, Q14D
     Route: 042
     Dates: start: 20090703
  3. DOXORUBICIN HCL [Suspect]
     Indication: BREAST CANCER
     Dosage: 10 MG/KG, Q14D
     Route: 042
     Dates: start: 20090703
  4. BLINDED PACLITAXEL [Suspect]
     Indication: BREAST CANCER
     Dosage: 10 MG/KG, Q14D
     Route: 042
     Dates: start: 20090703
  5. BLINDED PLACEBO [Suspect]
     Indication: BREAST CANCER
     Dosage: 10 MG/KG, Q14D
     Route: 042
     Dates: start: 20090703
  6. BLINDED BEVACIZUMAB [Suspect]
     Dosage: 15 MG/KG, Q21D
     Route: 042
  7. CYCLOPHOSPHAMIDE [Suspect]
     Dosage: 15 MG/KG, Q21D
     Route: 042
  8. DOXORUBICIN HCL [Suspect]
     Dosage: 15 MG/KG, Q21D
     Route: 042
  9. BLINDED PACLITAXEL [Suspect]
     Dosage: 15 MG/KG, Q21D
     Route: 042
  10. BLINDED PLACEBO [Suspect]
     Dosage: 15 MG/KG, Q21D
     Route: 042
  11. DOXORUBICIN HCL [Concomitant]
     Indication: BREAST CANCER
     Dosage: 60 MG/M2, Q14D
     Route: 042
     Dates: start: 20090703
  12. CYCLOPHOSPHAMIDE [Concomitant]
     Indication: BREAST CANCER
     Dosage: 600 MG/M2, Q14D
     Route: 042
     Dates: start: 20090703

REACTIONS (1)
  - BLOOD SODIUM DECREASED [None]
